FAERS Safety Report 11618292 (Version 25)
Quarter: 2022Q2

REPORT INFORMATION
  Report Type: Report from Study
  Country: BR (occurrence: BR)
  Receive Date: 20151011
  Receipt Date: 20220519
  Transmission Date: 20220720
  Serious: Yes (Life-Threatening, Hospitalization, Disabling)
  Sender: FDA-Public Use
  Company Number: PHHO2015BR014523

PATIENT
  Age: 74 Year
  Sex: Male
  Weight: 80.9 kg

DRUGS (39)
  1. NILOTINIB [Suspect]
     Active Substance: NILOTINIB
     Indication: Chronic myeloid leukaemia
     Dosage: 400 MG, BID
     Route: 048
     Dates: start: 20131204, end: 20141202
  2. NILOTINIB [Suspect]
     Active Substance: NILOTINIB
     Dosage: 400 MG, BID
     Route: 048
     Dates: start: 20150416, end: 20150929
  3. LOSARTAN POTASSIUM [Concomitant]
     Active Substance: LOSARTAN POTASSIUM
     Indication: Hypertension
     Dosage: 100 MG, BID
     Route: 065
     Dates: start: 20150926, end: 20151013
  4. LOSARTAN POTASSIUM [Concomitant]
     Active Substance: LOSARTAN POTASSIUM
     Dosage: 50 MG, BID
     Route: 065
     Dates: start: 20151104, end: 20151104
  5. HYDROCHLOROTHIAZIDE [Concomitant]
     Active Substance: HYDROCHLOROTHIAZIDE
     Indication: Hypertension
     Dosage: UNK
     Route: 065
     Dates: start: 2010
  6. HYDROCHLOROTHIAZIDE [Concomitant]
     Active Substance: HYDROCHLOROTHIAZIDE
     Dosage: UNK
     Route: 065
     Dates: start: 20151104, end: 20151107
  7. CAPTOPRIL [Concomitant]
     Active Substance: CAPTOPRIL
     Indication: Hypertension
     Dosage: 25 MG, PRN
     Route: 065
     Dates: start: 20150916, end: 20150926
  8. CAPTOPRIL [Concomitant]
     Active Substance: CAPTOPRIL
     Dosage: 25 MG, PRN
     Route: 065
     Dates: start: 20151014, end: 20151103
  9. CAPTOPRIL [Concomitant]
     Active Substance: CAPTOPRIL
     Dosage: 25 MG, PRN
     Route: 065
     Dates: start: 20151114, end: 20151114
  10. INSULIN HUMAN [Concomitant]
     Active Substance: INSULIN HUMAN
     Indication: Hyperglycaemia
     Dosage: UNK
     Route: 065
     Dates: start: 20151014, end: 20151201
  11. INSULIN HUMAN [Concomitant]
     Active Substance: INSULIN HUMAN
     Dosage: UNK
     Route: 065
     Dates: start: 20151205, end: 20151205
  12. DEXCHLORPHENIRAMINE [Concomitant]
     Active Substance: DEXCHLORPHENIRAMINE
     Indication: Hypersensitivity
     Dosage: 2 MG, QD
     Route: 065
     Dates: start: 20150918, end: 20150921
  13. CLONAZEPAM [Concomitant]
     Active Substance: CLONAZEPAM
     Indication: Agitation
     Dosage: 2 MG, BID
     Route: 065
     Dates: start: 20151001, end: 20151013
  14. HALOPERIDOL [Concomitant]
     Active Substance: HALOPERIDOL
     Indication: Agitation
     Dosage: 5 MG, QID
     Route: 065
     Dates: start: 20151001, end: 20151006
  15. HALOPERIDOL [Concomitant]
     Active Substance: HALOPERIDOL
     Dosage: 1 AMP DF, UNK
     Route: 065
     Dates: start: 20151104, end: 20151104
  16. METOCLOPRAMIDE [Concomitant]
     Active Substance: METOCLOPRAMIDE
     Indication: Vomiting
     Dosage: UNK
     Route: 065
     Dates: start: 20151019, end: 20151103
  17. METOCLOPRAMIDE [Concomitant]
     Active Substance: METOCLOPRAMIDE
     Dosage: UNK
     Route: 065
     Dates: start: 20151114, end: 20151114
  18. OMEPRAZOLE [Concomitant]
     Active Substance: OMEPRAZOLE
     Indication: Prophylaxis
     Dosage: 40 MG, QD
     Route: 065
     Dates: start: 20150916, end: 20151014
  19. HYDROCORTISONE [Concomitant]
     Active Substance: HYDROCORTISONE
     Indication: Tachypnoea
     Dosage: 100 MG, UNK
     Route: 065
     Dates: start: 20150928, end: 20151013
  20. IPRATROPIUM BROMIDE [Concomitant]
     Active Substance: IPRATROPIUM BROMIDE
     Indication: Tachypnoea
     Dosage: 0.25 MG, QID
     Route: 065
     Dates: start: 20150927, end: 20151013
  21. AMIODARONE [Concomitant]
     Active Substance: AMIODARONE
     Indication: Arrhythmia
     Dosage: 50 MG, QD
     Route: 065
     Dates: start: 20150927, end: 20151013
  22. DEXTROSE [Concomitant]
     Active Substance: DEXTROSE
     Indication: Product used for unknown indication
     Dosage: UNK
     Route: 065
     Dates: start: 20151020, end: 20151020
  23. DEXTROSE [Concomitant]
     Active Substance: DEXTROSE
     Dosage: UNK
     Route: 065
     Dates: start: 20151022, end: 20151022
  24. DEXTROSE [Concomitant]
     Active Substance: DEXTROSE
     Dosage: UNK
     Route: 065
     Dates: start: 20151111, end: 20151111
  25. DEXTROSE [Concomitant]
     Active Substance: DEXTROSE
     Dosage: UNK
     Route: 065
     Dates: start: 20151114, end: 20151114
  26. DEXTROSE [Concomitant]
     Active Substance: DEXTROSE
     Dosage: UNK
     Route: 065
     Dates: start: 20151117, end: 20151117
  27. DIAZEPAM [Concomitant]
     Active Substance: DIAZEPAM
     Indication: Agitation
     Dosage: 10 ML, UNK
     Route: 065
     Dates: start: 20151105, end: 20151201
  28. BROMOPRIDE [Concomitant]
     Active Substance: BROMOPRIDE
     Indication: Vomiting
     Dosage: 10 MG, UNK
     Route: 065
     Dates: start: 20151104, end: 20151113
  29. AMLODIPINE [Concomitant]
     Active Substance: AMLODIPINE BESYLATE
     Indication: Hypertension
     Dosage: 10 MG, BID
     Route: 065
     Dates: start: 20150921
  30. AMLODIPINE [Concomitant]
     Active Substance: AMLODIPINE BESYLATE
     Dosage: QD
     Route: 065
     Dates: start: 20151017, end: 20151025
  31. AMLODIPINE [Concomitant]
     Active Substance: AMLODIPINE BESYLATE
     Dosage: QD
     Route: 065
     Dates: start: 20151028, end: 20151028
  32. SODIUM CHLORIDE [Concomitant]
     Active Substance: SODIUM CHLORIDE
     Indication: Product used for unknown indication
     Dosage: UNK
     Route: 065
     Dates: start: 20151020, end: 20151021
  33. SODIUM CHLORIDE [Concomitant]
     Active Substance: SODIUM CHLORIDE
     Dosage: UNK
     Route: 065
     Dates: start: 20151023, end: 20151023
  34. SODIUM CHLORIDE [Concomitant]
     Active Substance: SODIUM CHLORIDE
     Dosage: UNK
     Route: 065
     Dates: start: 20151104, end: 20151104
  35. ACETYLCYSTEINE [Concomitant]
     Active Substance: ACETYLCYSTEINE
     Indication: Product used for unknown indication
     Dosage: 600 MG, UNK
     Route: 065
     Dates: start: 20151020, end: 20151025
  36. MINERAL OIL [Concomitant]
     Active Substance: MINERAL OIL
     Indication: Constipation
     Dosage: 30 ML, TID
     Route: 065
     Dates: start: 20151028, end: 20151028
  37. DIAZEPAM [Concomitant]
     Active Substance: DIAZEPAM
     Indication: Hypertension
     Dosage: 100 MG, UNK
     Route: 065
     Dates: start: 20151107, end: 20151201
  38. ONDANSETRON [Concomitant]
     Active Substance: ONDANSETRON
     Indication: Vomiting
     Dosage: 8 MG, UNK
     Route: 065
     Dates: start: 20151115, end: 20151115
  39. CLONIDINE HYDROCHLORIDE [Concomitant]
     Active Substance: CLONIDINE HYDROCHLORIDE
     Indication: Hypertension
     Dosage: 0.1 MG, TID
     Route: 065
     Dates: start: 20151002, end: 20151013

REACTIONS (4)
  - Pain [Recovered/Resolved with Sequelae]
  - Peripheral arterial occlusive disease [Recovered/Resolved with Sequelae]
  - Septic shock [Recovered/Resolved]
  - Pulmonary congestion [Recovered/Resolved]

NARRATIVE: CASE EVENT DATE: 20150801
